FAERS Safety Report 8941468 (Version 2)
Quarter: 2013Q1

REPORT INFORMATION
  Report Type: Spontaneous
  Country: US (occurrence: US)
  Receive Date: 20121203
  Receipt Date: 20130107
  Transmission Date: 20140127
  Serious: No
  Sender: FDA-Public Use
  Company Number: US-PFIZER INC-2012300869

PATIENT
  Age: 65 Year
  Sex: Female
  Weight: 56.69 kg

DRUGS (3)
  1. LIPITOR [Suspect]
     Indication: BLOOD CHOLESTEROL INCREASED
     Dosage: 40 MG, 1X/DAY
     Route: 048
     Dates: end: 201211
  2. LISINOPRIL [Concomitant]
     Indication: HYPERTENSION
     Dosage: 10 MG, 1X/DAY
  3. METOPROLOL [Concomitant]
     Indication: HYPERTENSION
     Dosage: 25 MG, 1X/DAY

REACTIONS (1)
  - Drug ineffective [Unknown]
